FAERS Safety Report 19718468 (Version 1)
Quarter: 2021Q3

REPORT INFORMATION
  Report Type: Spontaneous
  Country: ES (occurrence: ES)
  Receive Date: 20210819
  Receipt Date: 20210819
  Transmission Date: 20211014
  Serious: Yes (Hospitalization, Other)
  Sender: FDA-Public Use
  Company Number: ES-PFIZER INC-202101063149

PATIENT
  Age: 39 Year
  Sex: Female
  Weight: 75 kg

DRUGS (1)
  1. METHOTREXATE SODIUM. [Suspect]
     Active Substance: METHOTREXATE SODIUM
     Dosage: UNK
     Dates: start: 20210715

REACTIONS (6)
  - Anaemia [Recovered/Resolved]
  - Abdominal pain [Unknown]
  - Haemorrhage in pregnancy [Unknown]
  - Micturition disorder [Unknown]
  - Dizziness [Unknown]
  - Maternal exposure during pregnancy [Unknown]

NARRATIVE: CASE EVENT DATE: 20210715
